FAERS Safety Report 23380485 (Version 1)
Quarter: 2024Q1

REPORT INFORMATION
  Report Type: Spontaneous
  Country: DE (occurrence: DE)
  Receive Date: 20240109
  Receipt Date: 20240109
  Transmission Date: 20240409
  Serious: No
  Sender: FDA-Public Use
  Company Number: None

PATIENT
  Age: 21 Year
  Sex: Female
  Weight: 73 kg

DRUGS (1)
  1. IBUPROFEN [Suspect]
     Active Substance: IBUPROFEN
     Indication: Nasopharyngitis
     Dosage: UNK, PRN (AS NECESSARY)
     Route: 048
     Dates: start: 20231001, end: 20231005

REACTIONS (2)
  - Initial insomnia [Recovering/Resolving]
  - Insomnia [Recovering/Resolving]
